FAERS Safety Report 21120554 (Version 1)
Quarter: 2022Q3

REPORT INFORMATION
  Report Type: Report from Study
  Country: DE (occurrence: DE)
  Receive Date: 20220722
  Receipt Date: 20220722
  Transmission Date: 20221026
  Serious: Yes (Hospitalization)
  Sender: FDA-Public Use
  Company Number: DE-ELI_LILLY_AND_COMPANY-DE202207004643

PATIENT
  Age: 75 Year
  Sex: Female
  Weight: 66 kg

DRUGS (4)
  1. ALIMTA [Suspect]
     Active Substance: PEMETREXED DISODIUM
     Indication: Non-small cell lung cancer
     Dosage: 856.01 MG, UNKNOWN
     Route: 042
     Dates: start: 20211126
  2. ALIMTA [Suspect]
     Active Substance: PEMETREXED DISODIUM
     Dosage: 680 MG, UNKNOWN
     Route: 042
     Dates: start: 20211217
  3. CARBOPLATIN [Concomitant]
     Active Substance: CARBOPLATIN
     Indication: Non-small cell lung cancer
     Dosage: 492.32 MG, UNKNOWN
     Route: 042
     Dates: start: 20211126
  4. CARBOPLATIN [Concomitant]
     Active Substance: CARBOPLATIN
     Dosage: 394 MG, UNKNOWN
     Route: 042
     Dates: start: 20211217

REACTIONS (7)
  - Febrile neutropenia [Recovered/Resolved]
  - Sepsis [Recovered/Resolved]
  - Leukopenia [Recovered/Resolved]
  - Thrombocytopenia [Recovered/Resolved]
  - Epistaxis [Recovered/Resolved]
  - Lower gastrointestinal haemorrhage [Recovered/Resolved]
  - Anaemia [Recovered/Resolved]

NARRATIVE: CASE EVENT DATE: 20211227
